FAERS Safety Report 9879564 (Version 10)
Quarter: 2014Q3

REPORT INFORMATION
  Report Type: Report from Study
  Country: JP (occurrence: JP)
  Receive Date: 20140206
  Receipt Date: 20140731
  Transmission Date: 20150326
  Serious: Yes (Hospitalization, Other)
  Sender: FDA-Public Use
  Company Number: JP-EISAI INC-E2007-01511-CLI-JP

PATIENT
  Age: 18 Year
  Sex: Male
  Weight: 65 kg

DRUGS (13)
  1. RIVOTRIL [Concomitant]
     Active Substance: CLONAZEPAM
     Indication: EPILEPSY
     Route: 048
     Dates: start: 20090306
  2. BAKTAR [Concomitant]
     Active Substance: SULFAMETHOXAZOLE\TRIMETHOPRIM
     Indication: PNEUMOCYSTIS JIROVECII PNEUMONIA
     Route: 048
     Dates: start: 20140201, end: 20140211
  3. E2007 (PERAMPANEL) [Suspect]
     Active Substance: PERAMPANEL
     Dosage: EXTENSION PHASE- CONVERSION PERIOD
     Route: 048
     Dates: start: 20130701, end: 20130811
  4. E2007 (PERAMPANEL) [Suspect]
     Active Substance: PERAMPANEL
     Dosage: OPEN LABEL EXTENSION
     Route: 048
     Dates: start: 20130812, end: 20140130
  5. TEGRETOL [Concomitant]
     Active Substance: CARBAMAZEPINE
     Indication: EPILEPSY
     Route: 048
     Dates: start: 20081128, end: 20140207
  6. E2007 (PERAMPANEL) [Suspect]
     Active Substance: PERAMPANEL
     Indication: PARTIAL SEIZURES
     Dosage: CORE STUDY
     Route: 048
     Dates: start: 20130121, end: 20130630
  7. TEGRETOL [Concomitant]
     Active Substance: CARBAMAZEPINE
     Route: 048
     Dates: start: 20140208
  8. IDAMYCIN [Concomitant]
     Active Substance: IDARUBICIN HYDROCHLORIDE
     Indication: ACUTE PROMYELOCYTIC LEUKAEMIA
     Dates: start: 20140201, end: 20140203
  9. IDAMYCIN [Concomitant]
     Active Substance: IDARUBICIN HYDROCHLORIDE
     Dates: start: 20140205, end: 20140205
  10. BAKTAR [Concomitant]
     Active Substance: SULFAMETHOXAZOLE\TRIMETHOPRIM
     Dosage: 1 TABLET DAILY
     Route: 048
     Dates: start: 20140212
  11. CYLOCIDE [Suspect]
     Active Substance: CYTARABINE
     Indication: ACUTE PROMYELOCYTIC LEUKAEMIA
     Dates: start: 20140201, end: 20140202
  12. VESANOID [Suspect]
     Active Substance: TRETINOIN
     Indication: ACUTE PROMYELOCYTIC LEUKAEMIA
     Route: 048
     Dates: start: 20140131, end: 20140202
  13. FEBURIC [Suspect]
     Active Substance: FEBUXOSTAT
     Indication: TUMOUR LYSIS SYNDROME
     Route: 048
     Dates: start: 20140201, end: 20140202

REACTIONS (10)
  - Acute promyelocytic leukaemia [Not Recovered/Not Resolved]
  - Anaemia [None]
  - Vomiting [None]
  - Contusion [None]
  - Petit mal epilepsy [None]
  - Epistaxis [None]
  - Acute respiratory failure [Recovered/Resolved]
  - Lip haemorrhage [None]
  - Fall [None]
  - Febrile neutropenia [None]

NARRATIVE: CASE EVENT DATE: 20140130
